FAERS Safety Report 6832647-7 (Version None)
Quarter: 2010Q3

REPORT INFORMATION
  Report Type: 
  Country: None (occurrence: None)
  Receive Date: 20100712
  Receipt Date: 20070321
  Transmission Date: 20110219
  Serious: No
  Sender: FDA-Public Use
  Company Number: US-PFIZER INC-2007020074

PATIENT
  Sex: Male
  Weight: 86.18 kg

DRUGS (12)
  1. CHANTIX [Suspect]
     Dates: start: 20070201, end: 20070306
  2. OMEPRAZOLE [Concomitant]
     Indication: GASTROOESOPHAGEAL REFLUX DISEASE
  3. VALSARTAN [Concomitant]
  4. ATENOLOL [Concomitant]
  5. MAXZIDE [Concomitant]
  6. COMBIVENT [Concomitant]
  7. TYLENOL PM [Concomitant]
  8. SUDAFED 12 HOUR [Concomitant]
  9. ACETYLSALICYLIC ACID [Concomitant]
  10. MULTI-VITAMINS [Concomitant]
  11. VITAMIN C [Concomitant]
  12. CALCIUM [Concomitant]

REACTIONS (5)
  - ABNORMAL DREAMS [None]
  - DECREASED APPETITE [None]
  - INSOMNIA [None]
  - NAUSEA [None]
  - WEIGHT DECREASED [None]
